FAERS Safety Report 9905249 (Version 1)
Quarter: 2014Q1

REPORT INFORMATION
  Report Type: Spontaneous
  Country: BR (occurrence: None)
  Receive Date: 20140211
  Receipt Date: 20140211
  Transmission Date: 20141002
  Serious: Yes (Hospitalization)
  Sender: FDA-Public Use
  Company Number: DSJ-2014-02475

PATIENT
  Age: 52 Year
  Sex: Female
  Weight: 74 kg

DRUGS (3)
  1. BENICAR (OLMESARTAN MEDOXOMIL) (TABLET) (OLMESARTAN MEDOXOMIL) [Suspect]
     Indication: HYPERTENSION
     Dosage: 20 MG, 1 IN 1 D
     Route: 048
     Dates: start: 20100113, end: 20140123
  2. OMEPRAZOLE [Concomitant]
  3. OMEGA [Concomitant]

REACTIONS (5)
  - Intervertebral disc protrusion [None]
  - Weight decreased [None]
  - Abdominal pain upper [None]
  - Blood pressure increased [None]
  - Condition aggravated [None]
